FAERS Safety Report 23017549 (Version 1)
Quarter: 2023Q4

REPORT INFORMATION
  Report Type: Spontaneous
  Country: US (occurrence: US)
  Receive Date: 20231003
  Receipt Date: 20231003
  Transmission Date: 20240110
  Serious: Yes (Hospitalization, Other)
  Sender: FDA-Public Use
  Company Number: US-PROCTER_AND_GAMBLE-PH23008726

PATIENT
  Age: 63 Year
  Sex: Male

DRUGS (2)
  1. BISMUTH SUBSALICYLATE [Suspect]
     Active Substance: BISMUTH SUBSALICYLATE
     Indication: Vomiting
     Dosage: 525 MILLIGRAM, 2 /DAY
     Route: 048
  2. BISMUTH SUBSALICYLATE [Suspect]
     Active Substance: BISMUTH SUBSALICYLATE
     Indication: Diarrhoea
     Dosage: 262 MILLIGRAM (MULTIPLE ADDITIONAL 262 MG TS AS NEEDED)
     Route: 048

REACTIONS (16)
  - Toxicity to various agents [Recovering/Resolving]
  - Neurotoxicity [Recovering/Resolving]
  - Disturbance in attention [Recovering/Resolving]
  - Seizure like phenomena [Recovering/Resolving]
  - Memory impairment [Recovering/Resolving]
  - Tremor [Recovering/Resolving]
  - Muscle spasticity [Recovering/Resolving]
  - Myoclonus [Recovering/Resolving]
  - Confusional state [Recovering/Resolving]
  - Neurological decompensation [Recovering/Resolving]
  - Executive dysfunction [Recovering/Resolving]
  - Balance disorder [Recovering/Resolving]
  - Cognitive disorder [Recovering/Resolving]
  - Heavy metal increased [Recovering/Resolving]
  - Product use in unapproved indication [Unknown]
  - Incorrect product administration duration [Unknown]
